FAERS Safety Report 11340749 (Version 1)
Quarter: 2015Q3

REPORT INFORMATION
  Report Type: Spontaneous
  Country: US (occurrence: US)
  Receive Date: 20150805
  Receipt Date: 20150805
  Transmission Date: 20151125
  Serious: Yes (Life-Threatening)
  Sender: FDA-Public Use
  Company Number: US-FRESENIUS KABI-FK201503660

PATIENT
  Age: 16 Year
  Sex: Female

DRUGS (3)
  1. LEVETIRACETAM (MANUFACTURER UNKNOWN) (LEVETIRACETAM) (LEVETIRACETAM) [Suspect]
     Active Substance: LEVETIRACETAM
     Indication: PRODUCT USED FOR UNKNOWN INDICATION
     Route: 048
  2. CYCLOBENZAPRINE [Suspect]
     Active Substance: CYCLOBENZAPRINE
     Indication: PRODUCT USED FOR UNKNOWN INDICATION
     Route: 048
  3. LACOSAMIDE [Suspect]
     Active Substance: LACOSAMIDE
     Indication: PRODUCT USED FOR UNKNOWN INDICATION
     Route: 048

REACTIONS (8)
  - Intentional self-injury [Recovered/Resolved]
  - Metabolic acidosis [Recovered/Resolved]
  - Generalised tonic-clonic seizure [Recovered/Resolved]
  - Depressed level of consciousness [Recovered/Resolved]
  - Respiratory depression [Recovered/Resolved]
  - Cardiac arrest [Recovered/Resolved]
  - Intentional overdose [Recovered/Resolved]
  - Respiratory acidosis [Recovered/Resolved]
